FAERS Safety Report 6070201-8 (Version None)
Quarter: 2009Q1

REPORT INFORMATION
  Report Type: 
  Country: None (occurrence: None)
  Receive Date: 20090209
  Receipt Date: 20090126
  Transmission Date: 20090719
  Serious: Yes (Other)
  Sender: FDA-Public Use
  Company Number: JP-PFIZER INC-2009156954

PATIENT

DRUGS (8)
  1. RIFABUTIN [Suspect]
     Indication: MYCOBACTERIUM AVIUM COMPLEX INFECTION
     Dosage: 150 MG, 1X/DAY
     Dates: start: 20081218, end: 20090105
  2. KLARICID [Concomitant]
     Dosage: UNK
     Route: 048
  3. AVELOX [Concomitant]
     Dosage: UNK
     Dates: start: 20081218, end: 20090113
  4. AVELOX [Concomitant]
     Dates: start: 20081218, end: 20090113
  5. KANAMYCIN [Concomitant]
     Dosage: UNK
     Route: 030
     Dates: start: 20081218
  6. KANAMYCIN [Concomitant]
     Dates: start: 20081218
  7. EBUTOL [Concomitant]
     Dosage: UNK
     Route: 048
  8. DRUG, UNSPECIFIED [Concomitant]
     Dosage: UNK

REACTIONS (1)
  - LIVER DISORDER [None]
